FAERS Safety Report 20645369 (Version 1)
Quarter: 2022Q1

REPORT INFORMATION
  Report Type: Spontaneous
  Country: US (occurrence: None)
  Receive Date: 20220328
  Receipt Date: 20220328
  Transmission Date: 20220423
  Serious: Yes (Other)
  Sender: FDA-Public Use
  Company Number: None

PATIENT
  Age: 49 Year
  Sex: Male
  Weight: 162 kg

DRUGS (14)
  1. ACETAMINOPHEN\OXYCODONE HYDROCHLORIDE [Suspect]
     Active Substance: ACETAMINOPHEN\OXYCODONE HYDROCHLORIDE
     Indication: Pain
     Dosage: FREQUENCY : EVERY 6 HOURS;?
     Route: 048
     Dates: end: 20220328
  2. ACETAMINOPHEN\OXYCODONE HYDROCHLORIDE [Suspect]
     Active Substance: ACETAMINOPHEN\OXYCODONE HYDROCHLORIDE
     Indication: Fibromyalgia
  3. ACETAMINOPHEN\OXYCODONE HYDROCHLORIDE [Suspect]
     Active Substance: ACETAMINOPHEN\OXYCODONE HYDROCHLORIDE
     Indication: Arthritis
  4. ACETAMINOPHEN\OXYCODONE HYDROCHLORIDE [Suspect]
     Active Substance: ACETAMINOPHEN\OXYCODONE HYDROCHLORIDE
     Indication: Diabetic neuropathy
  5. Janumet 50/1000 (1 per day) [Concomitant]
  6. Gemfibrozil 600mg (1 per day) [Concomitant]
  7. Atenolol 25mg (1 per day) [Concomitant]
  8. Lisinopril 5mg (1 per day) [Concomitant]
  9. Celecoxib 200mg (2 per day only when out of my pain medication [Concomitant]
  10. Advanced Probiotic [Concomitant]
  11. FISH OIL [Concomitant]
     Active Substance: FISH OIL
  12. Omega-3/300 mg 2x a day [Concomitant]
  13. Mens Multivitamin [Concomitant]
  14. VITAMIN B-12 [Concomitant]

REACTIONS (12)
  - Drug ineffective [None]
  - Nausea [None]
  - Vomiting [None]
  - Abnormal dreams [None]
  - Anxiety [None]
  - Diabetic neuropathy [None]
  - Pain [None]
  - Head discomfort [None]
  - Product substitution [None]
  - Product tampering [None]
  - Product complaint [None]
  - Hernia [None]

NARRATIVE: CASE EVENT DATE: 20220210
